FAERS Safety Report 21799247 (Version 1)
Quarter: 2022Q4

REPORT INFORMATION
  Report Type: Spontaneous
  Country: US (occurrence: None)
  Receive Date: 20221230
  Receipt Date: 20221230
  Transmission Date: 20230113
  Serious: No
  Sender: FDA-Public Use
  Company Number: 2022A396165

PATIENT
  Sex: Male

DRUGS (2)
  1. PULMICORT FLEXHALER [Suspect]
     Active Substance: BUDESONIDE
     Indication: Asthma
     Dosage: 180 MCG, 2 PUFFS, BID
     Route: 055
  2. PULMICORT FLEXHALER [Suspect]
     Active Substance: BUDESONIDE
     Indication: Bronchiectasis
     Dosage: 180 MCG, 2 PUFFS, BID
     Route: 055

REACTIONS (8)
  - Asthma [Unknown]
  - Bronchiectasis [Unknown]
  - COVID-19 [Unknown]
  - Body mass index increased [Unknown]
  - Intentional product misuse [Unknown]
  - Drug ineffective [Unknown]
  - Product selection error [Unknown]
  - Product administration error [Unknown]

NARRATIVE: CASE EVENT DATE: 20200701
